FAERS Safety Report 18768947 (Version 1)
Quarter: 2021Q1

REPORT INFORMATION
  Report Type: Spontaneous
  Country: GB (occurrence: GB)
  Receive Date: 20210121
  Receipt Date: 20210121
  Transmission Date: 20210419
  Serious: Yes (Life-Threatening, Hospitalization)
  Sender: FDA-Public Use
  Company Number: GB-CUMBERLAND-2021-US-000005

PATIENT
  Age: 43 Year
  Sex: Male

DRUGS (2)
  1. REDITREX [Suspect]
     Active Substance: METHOTREXATE
  2. APIXABAN [Suspect]
     Active Substance: APIXABAN

REACTIONS (4)
  - Atelectasis [Recovered/Resolved]
  - Respiratory failure [Recovered/Resolved]
  - Cardiac tamponade [Unknown]
  - Pericardial effusion [Recovered/Resolved]
